FAERS Safety Report 20622823 (Version 2)
Quarter: 2023Q1

REPORT INFORMATION
  Report Type: Spontaneous
  Country: US (occurrence: US)
  Receive Date: 20220322
  Receipt Date: 20230322
  Transmission Date: 20230418
  Serious: No
  Sender: FDA-Public Use
  Company Number: US-ALLERGAN-2202629US

PATIENT
  Age: 68 Year
  Sex: Female
  Weight: 61.224 kg

DRUGS (2)
  1. LATISSE [Suspect]
     Active Substance: BIMATOPROST
     Indication: Growth of eyelashes
     Dosage: UNK UNK, QD
     Dates: start: 202112
  2. LEVOTHYROXINE [Concomitant]
     Active Substance: LEVOTHYROXINE
     Indication: Thyroid disorder
     Dosage: UNK
     Dates: start: 1982

REACTIONS (2)
  - Drug ineffective [Unknown]
  - Madarosis [Unknown]

NARRATIVE: CASE EVENT DATE: 20211201
